FAERS Safety Report 5745945-5 (Version None)
Quarter: 2008Q2

REPORT INFORMATION
  Report Type: 
  Country: None (occurrence: None)
  Receive Date: 20080520
  Receipt Date: 20080513
  Transmission Date: 20081010
  Serious: Yes (Death, Disabling)
  Sender: FDA-Public Use
  Company Number: OSCN-PR-0805S-0258

PATIENT
  Age: 70 Year
  Sex: Male

DRUGS (4)
  1. OMNISCAN [Suspect]
     Indication: DRUG USE FOR UNKNOWN INDICATION
     Dosage: SINGLE DOSE,; SINGLE DOSE,; SINGLE DOSE,; SINGLE DOSE,
     Dates: start: 20030415, end: 20030415
  2. OMNISCAN [Suspect]
     Indication: DRUG USE FOR UNKNOWN INDICATION
     Dosage: SINGLE DOSE,; SINGLE DOSE,; SINGLE DOSE,; SINGLE DOSE,
     Dates: start: 20040226, end: 20040226
  3. OMNISCAN [Suspect]
     Indication: DRUG USE FOR UNKNOWN INDICATION
     Dosage: SINGLE DOSE,; SINGLE DOSE,; SINGLE DOSE,; SINGLE DOSE,
     Dates: start: 20040318, end: 20040318
  4. OMNISCAN [Suspect]
     Indication: DRUG USE FOR UNKNOWN INDICATION
     Dosage: SINGLE DOSE,; SINGLE DOSE,; SINGLE DOSE,; SINGLE DOSE,
     Dates: start: 20040831, end: 20040831

REACTIONS (6)
  - CARDIAC DISORDER [None]
  - CEREBRAL HAEMORRHAGE [None]
  - FALL [None]
  - HEAD INJURY [None]
  - LUNG DISORDER [None]
  - NEPHROGENIC SYSTEMIC FIBROSIS [None]
